FAERS Safety Report 7682284-X (Version None)
Quarter: 2011Q3

REPORT INFORMATION
  Report Type: 
  Country: None (occurrence: None)
  Receive Date: 20110815
  Receipt Date: 20100413
  Transmission Date: 20111222
  Serious: Yes (Disabling, Other)
  Sender: FDA-Public Use
  Company Number: DE-BAYER-201023231GPV

PATIENT
  Age: 31 Year
  Weight: 78 kg

DRUGS (1)
  1. ESTRADIOL VALERATE/DIENOGEST [Suspect]
     Indication: PRODUCT USED FOR UNKNOWN INDICATION
     Dosage: 1 DF, QOD
     Route: 048
     Dates: start: 20100307

REACTIONS (3)
  - BREAST MASS [None]
  - BREAST DISCOMFORT [None]
  - BREAST PAIN [None]
